FAERS Safety Report 19227466 (Version 2)
Quarter: 2021Q2

REPORT INFORMATION
  Report Type: Report from Study
  Country: DE (occurrence: DE)
  Receive Date: 20210506
  Receipt Date: 20210515
  Transmission Date: 20210717
  Serious: Yes (Hospitalization, Other)
  Sender: FDA-Public Use
  Company Number: DE-TAKEDA-2021TUS028237

PATIENT
  Age: 70 Year
  Weight: 83 kg

DRUGS (15)
  1. AMLODIPIN AL [Concomitant]
     Indication: HYPERTENSION
     Dosage: 5 MILLIGRAM, PRN
     Route: 048
     Dates: start: 20160716
  2. CORTISON [Concomitant]
     Active Substance: CORTISONE ACETATE
     Indication: EYE DISORDER
     Dosage: 1 DOSAGE FORM, 5 TIMES DAILY
     Route: 031
     Dates: start: 20180201
  3. DESCOVY [Concomitant]
     Active Substance: EMTRICITABINE\TENOFOVIR ALAFENAMIDE FUMARATE
     Indication: HIV INFECTION
     Dosage: 25 MILLIGRAM, 5 TIMES DAILY
     Route: 048
     Dates: start: 201810
  4. PEGYLATED COAGULATION FACTOR VIII [Suspect]
     Active Substance: ANTIHEMOPHILIC FACTOR, PEGYLATED (MW 20000) HUMAN SEQUENCE RECOMBINANT
     Indication: HAEMOPHILIA
     Dosage: 2000 INTERNATIONAL UNIT, EVERY 2 DAY
     Route: 042
     Dates: start: 20190820, end: 20201102
  5. UROREC [Concomitant]
     Active Substance: SILODOSIN
     Indication: BENIGN PROSTATIC HYPERPLASIA
     Dosage: 8 MILLIGRAM
     Route: 048
     Dates: start: 20191121
  6. PEGYLATED COAGULATION FACTOR VIII [Suspect]
     Active Substance: ANTIHEMOPHILIC FACTOR, PEGYLATED (MW 20000) HUMAN SEQUENCE RECOMBINANT
     Indication: HAEMOPHILIA
     Dosage: 2000 INTERNATIONAL UNIT, EVERY 2 DAY
     Route: 042
     Dates: start: 20190820, end: 20201102
  7. BONVIVA [Concomitant]
     Active Substance: IBANDRONATE SODIUM
     Indication: OSTEOPOROSIS
     Dosage: UNK
     Route: 058
     Dates: start: 20110707
  8. PEGYLATED COAGULATION FACTOR VIII [Suspect]
     Active Substance: ANTIHEMOPHILIC FACTOR, PEGYLATED (MW 20000) HUMAN SEQUENCE RECOMBINANT
     Indication: HAEMOPHILIA
     Dosage: 2000 INTERNATIONAL UNIT, EVERY 2 DAY
     Route: 042
     Dates: start: 20190820, end: 20201102
  9. OFLOXACIN. [Concomitant]
     Active Substance: OFLOXACIN
     Indication: KERATOPLASTY
     Dosage: 1 DOSAGE FORM, QID
     Route: 031
     Dates: start: 20171130, end: 20171209
  10. DENOSUMAB [Concomitant]
     Active Substance: DENOSUMAB
     Indication: OSTEOPOROSIS
     Dosage: 60 MILLIGRAM, Q6MONTHS
     Route: 058
  11. IBUPROFEN. [Concomitant]
     Active Substance: IBUPROFEN
     Indication: ARTHRITIS
     Dosage: 600 MILLIGRAM, 2 TIMES DAILY
     Route: 048
     Dates: start: 20110726, end: 20110728
  12. TRUVADA [Concomitant]
     Active Substance: EMTRICITABINE\TENOFOVIR DISOPROXIL FUMARATE
     Indication: HIV INFECTION
     Dosage: UNK
     Route: 048
     Dates: start: 201810
  13. BIKTARVY [Concomitant]
     Active Substance: BICTEGRAVIR SODIUM\EMTRICITABINE\TENOFOVIR ALAFENAMIDE FUMARATE
     Indication: HIV INFECTION
     Dosage: UNK
     Route: 048
  14. ANTIBIOTICS [Concomitant]
     Active Substance: UNSPECIFIED INGREDIENT
     Indication: BRONCHITIS
     Dosage: UNK
     Route: 048
     Dates: start: 20111231
  15. ARCOXIA [Concomitant]
     Active Substance: ETORICOXIB
     Indication: PAIN
     Dosage: 60 MILLIGRAM, PRN
     Route: 048

REACTIONS (1)
  - Cataract [Recovered/Resolved]

NARRATIVE: CASE EVENT DATE: 20201103
